FAERS Safety Report 9044853 (Version 1)
Quarter: 2013Q1

REPORT INFORMATION
  Report Type: Spontaneous
  Country: US (occurrence: US)
  Receive Date: 20130130
  Receipt Date: 20130130
  Transmission Date: 20140127
  Serious: Yes (Hospitalization)
  Sender: FDA-Public Use
  Company Number: US-GLAXOSMITHKLINE-A0775487A

PATIENT
  Age: 61 Year
  Sex: Female

DRUGS (2)
  1. AVANDIA [Suspect]
     Indication: DIABETES MELLITUS
     Dosage: 8MG PER DAY
     Route: 048
     Dates: end: 200405
  2. VIOXX [Concomitant]

REACTIONS (3)
  - Cardiac failure congestive [Not Recovered/Not Resolved]
  - Pericardial effusion [Unknown]
  - Renal failure [Unknown]
